FAERS Safety Report 14860424 (Version 1)
Quarter: 2018Q2

REPORT INFORMATION
  Report Type: Spontaneous
  Country: US (occurrence: US)
  Receive Date: 20180423
  Receipt Date: 20180423
  Transmission Date: 20180711
  Serious: Yes (Hospitalization)
  Sender: FDA-Public Use
  Company Number: None

PATIENT
  Age: 67 Year
  Sex: Male

DRUGS (12)
  1. SILDENAFIL. [Suspect]
     Active Substance: SILDENAFIL
     Indication: PULMONARY HYPERTENSION
     Route: 048
     Dates: start: 20180125
  2. SPIRIVA [Concomitant]
     Active Substance: TIOTROPIUM BROMIDE MONOHYDRATE
  3. SPIRONOLACT [Concomitant]
     Active Substance: SPIRONOLACTONE
  4. DEXILANT [Concomitant]
     Active Substance: DEXLANSOPRAZOLE
  5. TORSEMIDE. [Concomitant]
     Active Substance: TORSEMIDE
  6. FOLIC ACID. [Concomitant]
     Active Substance: FOLIC ACID
  7. VITAMIN A [Concomitant]
     Active Substance: VITAMIN A
  8. DIGOXIN. [Concomitant]
     Active Substance: DIGOXIN
  9. TRACLEER [Concomitant]
     Active Substance: BOSENTAN
  10. METHOTREXATE. [Concomitant]
     Active Substance: METHOTREXATE
  11. FLONASE [Concomitant]
     Active Substance: FLUTICASONE PROPIONATE
  12. PREDNISONE. [Concomitant]
     Active Substance: PREDNISONE

REACTIONS (1)
  - Blister infected [None]

NARRATIVE: CASE EVENT DATE: 20180409
